FAERS Safety Report 9244631 (Version 3)
Quarter: 2013Q2

REPORT INFORMATION
  Report Type: Spontaneous
  Country: JP (occurrence: JP)
  Receive Date: 20130422
  Receipt Date: 20130510
  Transmission Date: 20140414
  Serious: Yes (Hospitalization)
  Sender: FDA-Public Use
  Company Number: JP-PFIZER INC-2013122612

PATIENT
  Age: 72 Year
  Sex: Male

DRUGS (13)
  1. SOLANAX [Suspect]
     Dosage: UNK
     Route: 048
  2. TOLEDOMIN [Concomitant]
     Dosage: UNK
  3. MICARDIS [Concomitant]
     Dosage: UNK
  4. AMLODIN [Concomitant]
     Dosage: UNK
  5. GASTER [Concomitant]
     Dosage: UNK
  6. PIMENOL [Concomitant]
     Dosage: UNK
  7. PURSENNID [Concomitant]
     Dosage: UNK
  8. LOXONIN [Concomitant]
     Dosage: UNK
  9. MUCOSOLVAN [Concomitant]
     Dosage: UNK
  10. DASEN [Concomitant]
     Dosage: UNK
  11. MEDICON [Concomitant]
     Dosage: UNK
  12. TRANSAMIN [Concomitant]
     Dosage: UNK
  13. CALONAL [Concomitant]
     Dosage: UNK

REACTIONS (2)
  - Pyrexia [Unknown]
  - Dehydration [Unknown]
